FAERS Safety Report 23172049 (Version 2)
Quarter: 2024Q1

REPORT INFORMATION
  Report Type: Spontaneous
  Country: US (occurrence: None)
  Receive Date: 20231110
  Receipt Date: 20240202
  Transmission Date: 20240410
  Serious: Yes (Other)
  Sender: FDA-Public Use
  Company Number: US-FARMAPROD-202311-3221

PATIENT
  Sex: Female

DRUGS (9)
  1. OXERVATE [Suspect]
     Active Substance: CENEGERMIN-BKBJ
     Indication: Neurotrophic keratopathy
     Route: 047
     Dates: start: 20230928, end: 202311
  2. OXERVATE [Suspect]
     Active Substance: CENEGERMIN-BKBJ
     Route: 047
     Dates: start: 20240124
  3. LEVOTHYROXINE SODIUM [Concomitant]
     Active Substance: LEVOTHYROXINE SODIUM
  4. MOUNJARO [Concomitant]
     Active Substance: TIRZEPATIDE
     Dosage: 15MG/0.5ML PEN INJECTOR;? 12.5MG/0.5 PEN INJECTOR;?10MG/0.5ML PEN INJECTOR;? 7.5 MG/0.5 PEN INJECTOR
  5. WEGOVY [Concomitant]
     Active Substance: SEMAGLUTIDE
     Dosage: 2.4MG/0.75 PEN INJECTOR;?1.7MG/0.75 EN INJECTOR.
  6. ROSUVASTATIN CALCIUM [Concomitant]
     Active Substance: ROSUVASTATIN CALCIUM
  7. OZEMPIC [Concomitant]
     Active Substance: SEMAGLUTIDE
     Dosage: 1 MG / 0.75 ML PEN INJECTOR.
  8. VALACYCLOVIR [Concomitant]
     Active Substance: VALACYCLOVIR HYDROCHLORIDE
  9. EPINEPHRINE [Concomitant]
     Active Substance: EPINEPHRINE
     Dosage: 0.3 MG / 0.3 AUTOMATIC INJECTOR.

REACTIONS (2)
  - Surgery [Unknown]
  - Product dose omission issue [Unknown]
